FAERS Safety Report 6333653-1 (Version None)
Quarter: 2009Q3

REPORT INFORMATION
  Report Type: 
  Country: None (occurrence: None)
  Receive Date: 20090829
  Receipt Date: 20090519
  Transmission Date: 20100115
  Serious: No
  Sender: FDA-Public Use
  Company Number: US-ABBOTT-09P-163-0575245-00

PATIENT
  Sex: Male
  Weight: 104.42 kg

DRUGS (4)
  1. SIMCOR [Suspect]
     Indication: CARDIAC DISORDER
     Dosage: 500/20 X2 TABS QHS
     Route: 048
     Dates: start: 20090416
  2. ALLOPURINOL [Concomitant]
     Indication: GOUT
     Dosage: 300 MG DAILY
  3. METOPROLOL [Concomitant]
     Indication: CARDIAC DISORDER
  4. LISINOPRIL AND HYDROCHLOROTHIAZIDE [Concomitant]
     Indication: CARDIAC DISORDER

REACTIONS (2)
  - BACK PAIN [None]
  - GOUT [None]
